FAERS Safety Report 5905550-4 (Version None)
Quarter: 2008Q4

REPORT INFORMATION
  Report Type: 
  Country: None (occurrence: None)
  Receive Date: 20081002
  Receipt Date: 20080924
  Transmission Date: 20090506
  Serious: Yes (Other)
  Sender: FDA-Public Use
  Company Number: US-ASTRAZENECA-2008UW20146

PATIENT
  Age: 81 Year
  Sex: Female
  Weight: 75.3 kg

DRUGS (8)
  1. CRESTOR [Suspect]
     Indication: BLOOD CHOLESTEROL INCREASED
     Route: 048
     Dates: start: 20080501
  2. CRESTOR [Suspect]
     Indication: BLOOD CHOLESTEROL DECREASED
     Route: 048
     Dates: start: 20080501
  3. NIASPAN [Concomitant]
  4. TRANXENE [Concomitant]
  5. ATIVAN [Concomitant]
  6. THEOPHYLLINE [Concomitant]
  7. METAMUCIL [Concomitant]
  8. FISH OIL [Concomitant]

REACTIONS (2)
  - MYOCARDIAL INFARCTION [None]
  - THROMBOSIS [None]
